FAERS Safety Report 15210936 (Version 6)
Quarter: 2019Q2

REPORT INFORMATION
  Report Type: Report from Study
  Country: US (occurrence: US)
  Receive Date: 20180728
  Receipt Date: 20190417
  Transmission Date: 20190711
  Serious: Yes (Disabling)
  Sender: FDA-Public Use
  Company Number: PHEH2018US030822

PATIENT
  Age: 36 Year
  Sex: Female

DRUGS (1)
  1. GILENYA [Suspect]
     Active Substance: FINGOLIMOD HYDROCHLORIDE
     Indication: MULTIPLE SCLEROSIS
     Dosage: 0.5 MG, QD
     Route: 048
     Dates: start: 20180720

REACTIONS (14)
  - Coordination abnormal [Unknown]
  - Pain [Unknown]
  - Alopecia [Unknown]
  - Skin laceration [Unknown]
  - Gait disturbance [Unknown]
  - Arthralgia [Unknown]
  - Muscular weakness [Unknown]
  - Rib fracture [Unknown]
  - Insomnia [Unknown]
  - Hypoaesthesia [Unknown]
  - Asthenia [Unknown]
  - Fall [Unknown]
  - Somnolence [Unknown]
  - Fatigue [Unknown]

NARRATIVE: CASE EVENT DATE: 20180720
